FAERS Safety Report 7941791-2 (Version None)
Quarter: 2011Q4

REPORT INFORMATION
  Report Type: 
  Country: None (occurrence: None)
  Receive Date: 20111128
  Receipt Date: 20111123
  Transmission Date: 20120403
  Serious: No
  Sender: FDA-Public Use
  Company Number: US-PFIZER INC-2011287093

PATIENT
  Age: 62 Year
  Sex: Female

DRUGS (1)
  1. CELEBREX [Suspect]
     Dosage: UNK

REACTIONS (5)
  - PARAESTHESIA [None]
  - FLUSHING [None]
  - HEADACHE [None]
  - HYPERTENSION [None]
  - MYALGIA [None]
